FAERS Safety Report 24846497 (Version 2)
Quarter: 2025Q1

REPORT INFORMATION
  Report Type: Spontaneous
  Country: JP (occurrence: JP)
  Receive Date: 20250115
  Receipt Date: 20250305
  Transmission Date: 20250408
  Serious: Yes (Hospitalization)
  Sender: EISAI
  Company Number: JP-Eisai-202413326_LEN-RCC_P_1

PATIENT
  Age: 74 Year
  Sex: Male

DRUGS (2)
  1. LENVIMA [Suspect]
     Active Substance: LENVATINIB
     Indication: Renal cell carcinoma
     Dosage: 1 COURSE
     Dates: start: 20241213
  2. KEYTRUDA [Suspect]
     Active Substance: PEMBROLIZUMAB
     Indication: Renal cell carcinoma
     Dosage: 1 COURSE
     Route: 041
     Dates: start: 20241213

REACTIONS (2)
  - Flank pain [Recovered/Resolved]
  - Ileus [Unknown]

NARRATIVE: CASE EVENT DATE: 20250104
